FAERS Safety Report 12764607 (Version 1)
Quarter: 2016Q3

REPORT INFORMATION
  Report Type: Spontaneous
  Country: DK (occurrence: DK)
  Receive Date: 20160920
  Receipt Date: 20160920
  Transmission Date: 20161109
  Serious: Yes (Other)
  Sender: FDA-Public Use
  Company Number: DK-ELI_LILLY_AND_COMPANY-DK201609005087

PATIENT
  Age: 17 Year
  Sex: Female
  Weight: 49 kg

DRUGS (25)
  1. ZYPREXA [Suspect]
     Active Substance: OLANZAPINE
     Indication: MENTAL DISORDER
     Dosage: UNK UNK, PRN
     Route: 048
     Dates: start: 200805
  2. CIPRALEX [Suspect]
     Active Substance: ESCITALOPRAM OXALATE
     Indication: DEPRESSION
     Dosage: UNK, UNKNOWN
     Route: 048
     Dates: start: 2008, end: 2011
  3. LYRICA [Suspect]
     Active Substance: PREGABALIN
     Indication: MENTAL DISORDER
     Dosage: UNK, UNKNOWN
     Route: 048
     Dates: start: 2011, end: 2011
  4. CANESTEN [Concomitant]
     Active Substance: CLOTRIMAZOLE
     Indication: FUNGAL INFECTION
     Dosage: UNK, UNKNOWN
     Route: 065
     Dates: start: 2008
  5. DOLOL                              /00020001/ [Concomitant]
     Active Substance: ACETAMINOPHEN
     Indication: PAIN
     Dosage: UNK, UNKNOWN
     Route: 048
     Dates: start: 200912, end: 2011
  6. FEXOFENADINE [Concomitant]
     Active Substance: FEXOFENADINE\FEXOFENADINE HYDROCHLORIDE
     Indication: RHINITIS
     Dosage: UNK, UNKNOWN
     Route: 065
     Dates: start: 2006, end: 2015
  7. SOLIAN [Suspect]
     Active Substance: AMISULPRIDE
     Indication: MENTAL DISORDER
     Dosage: UNK, UNKNOWN
     Route: 048
     Dates: start: 201107
  8. CIRCADIN [Suspect]
     Active Substance: MELATONIN
     Indication: MENTAL DISORDER
     Dosage: UNK, UNKNOWN
     Route: 048
     Dates: start: 201112, end: 201112
  9. VENLAFAXIN ACTAVIS [Suspect]
     Active Substance: VENLAFAXINE HYDROCHLORIDE
     Indication: MENTAL DISORDER
     Dosage: UNK, UNKNOWN
     Route: 048
     Dates: start: 2011
  10. DEPO-MEDROL [Concomitant]
     Active Substance: METHYLPREDNISOLONE ACETATE
     Indication: RHINITIS
     Dosage: UNK, UNKNOWN
     Route: 065
     Dates: start: 2006, end: 2015
  11. SERDOLECT [Suspect]
     Active Substance: SERTINDOLE
     Dosage: 16 MG, PRN
     Route: 048
     Dates: start: 200909
  12. ABILIFY [Suspect]
     Active Substance: ARIPIPRAZOLE
     Indication: MENTAL DISORDER
     Dosage: UNK, UNKNOWN
     Route: 065
     Dates: start: 200806
  13. TRADOLAN [Concomitant]
     Active Substance: TRAMADOL
     Indication: PAIN
     Dosage: UNK, UNKNOWN
     Route: 048
     Dates: start: 200912, end: 2011
  14. SEROQUEL [Suspect]
     Active Substance: QUETIAPINE FUMARATE
     Indication: MENTAL DISORDER
     Dosage: UNK, PRN
     Route: 048
     Dates: start: 200909
  15. PULMICORT TURBUHALER [Concomitant]
     Active Substance: BUDESONIDE
     Indication: ASTHMA
     Dosage: UNK, UNKNOWN
     Route: 065
     Dates: start: 2005
  16. BRENTAN                            /00310801/ [Concomitant]
     Active Substance: MICONAZOLE
     Indication: FUNGAL INFECTION
     Dosage: UNK, UNKNOWN
     Route: 065
     Dates: start: 2008
  17. CETIRIZIN ACTAVIS [Concomitant]
     Active Substance: CETIRIZINE HYDROCHLORIDE
     Indication: RHINITIS
     Dosage: UNK, UNKNOWN
     Route: 065
     Dates: start: 2006, end: 2015
  18. TRUXAL                             /00012101/ [Suspect]
     Active Substance: CHLORPROTHIXENE
     Indication: MENTAL DISORDER
     Dosage: UNK, PRN
     Route: 048
     Dates: start: 200805
  19. SERDOLECT [Suspect]
     Active Substance: SERTINDOLE
     Dosage: 12 MG, PRN
     Route: 048
     Dates: start: 200909
  20. SEROQUEL [Suspect]
     Active Substance: QUETIAPINE FUMARATE
     Indication: MENTAL DISORDER
     Dosage: UNK, PRN
     Route: 048
     Dates: start: 200805
  21. BRICANYL [Concomitant]
     Active Substance: TERBUTALINE SULFATE
     Indication: ASTHMA
     Dosage: UNK, UNKNOWN
     Route: 065
     Dates: start: 2005
  22. SERETIDE [Concomitant]
     Active Substance: FLUTICASONE PROPIONATE\SALMETEROL XINAFOATE
     Indication: ASTHMA
     Dosage: UNK, UNKNOWN
     Route: 065
     Dates: start: 2005
  23. DEPO-PROVERA [Concomitant]
     Active Substance: MEDROXYPROGESTERONE ACETATE
     Indication: CONTRACEPTION
     Dosage: UNK, UNKNOWN
     Route: 065
     Dates: start: 2008, end: 201503
  24. SERDOLECT [Suspect]
     Active Substance: SERTINDOLE
     Indication: MENTAL DISORDER
     Dosage: UNK, PRN
     Route: 048
     Dates: start: 200909
  25. NIZORAL [Concomitant]
     Active Substance: KETOCONAZOLE
     Indication: FUNGAL INFECTION
     Dosage: UNK, UNKNOWN
     Route: 065
     Dates: start: 2008

REACTIONS (40)
  - Abdominal pain [Recovered/Resolved]
  - Otitis media [Unknown]
  - Fatigue [Recovered/Resolved]
  - Hypersomnia [Recovered/Resolved]
  - Genital infection fungal [Unknown]
  - Violence-related symptom [Recovered/Resolved]
  - Bronchitis [Unknown]
  - Suicidal ideation [Recovered/Resolved]
  - Diarrhoea [Recovered/Resolved]
  - Derealisation [Recovered/Resolved]
  - Impulse-control disorder [Recovered/Resolved]
  - Hallucination, visual [Recovered/Resolved]
  - Asthenia [Recovered/Resolved]
  - Irritable bowel syndrome [Unknown]
  - Sleep paralysis [Recovered/Resolved]
  - Fungal skin infection [Unknown]
  - Anger [Recovered/Resolved]
  - Impaired reasoning [Recovered/Resolved]
  - Weight increased [Unknown]
  - Nightmare [Recovered/Resolved]
  - Depressed mood [Recovered/Resolved]
  - Decreased immune responsiveness [Unknown]
  - Lung infection [Unknown]
  - Pain [Recovered/Resolved]
  - Sleep disorder [Recovered/Resolved]
  - Insomnia [Recovered/Resolved]
  - Hallucination [Recovered/Resolved]
  - Libido disorder [Recovered/Resolved]
  - General physical condition abnormal [Unknown]
  - Nausea [Recovered/Resolved]
  - Drug ineffective [Recovered/Resolved]
  - Anxiety [Recovered/Resolved]
  - Gastrointestinal disorder [Recovered/Resolved]
  - Disturbance in sexual arousal [Recovered/Resolved]
  - Restlessness [Recovered/Resolved]
  - Hallucination, auditory [Recovered/Resolved]
  - Nasopharyngitis [Unknown]
  - Personality change [Recovered/Resolved]
  - Weight fluctuation [Unknown]
  - Impulsive behaviour [Recovered/Resolved]

NARRATIVE: CASE EVENT DATE: 200805
